FAERS Safety Report 12781345 (Version 1)
Quarter: 2016Q3

REPORT INFORMATION
  Report Type: Report from Study
  Country: BR (occurrence: BR)
  Receive Date: 20160926
  Receipt Date: 20160926
  Transmission Date: 20161109
  Serious: Yes (Hospitalization, Other)
  Sender: FDA-Public Use
  Company Number: BR-JNJFOC-20160723838

PATIENT
  Age: 62 Year
  Sex: Female

DRUGS (1)
  1. REMICADE [Suspect]
     Active Substance: INFLIXIMAB
     Indication: RHEUMATOID ARTHRITIS
     Dosage: 3 VIALS ON DAYS 0, 19 AND THEN 29 DAYS AFTER THE FIRST ONE
     Route: 042
     Dates: start: 201411

REACTIONS (6)
  - Wound [Unknown]
  - Inappropriate schedule of drug administration [Unknown]
  - Bone disorder [Unknown]
  - Off label use [Unknown]
  - Hypertension [Unknown]
  - Skin discolouration [Unknown]

NARRATIVE: CASE EVENT DATE: 201411
